FAERS Safety Report 25113597 (Version 1)
Quarter: 2025Q1

REPORT INFORMATION
  Report Type: Spontaneous
  Country: US (occurrence: US)
  Receive Date: 20250324
  Receipt Date: 20250324
  Transmission Date: 20250409
  Serious: Yes (Death, Other)
  Sender: FRESENIUS KABI
  Company Number: US-FreseniusKabi-FK202504064

PATIENT

DRUGS (2)
  1. AMIODARONE HYDROCHLORIDE [Suspect]
     Active Substance: AMIODARONE HYDROCHLORIDE
     Indication: Atrial fibrillation
  2. DEXTROSE [Suspect]
     Active Substance: DEXTROSE MONOHYDRATE
     Indication: Atrial fibrillation
     Route: 042

REACTIONS (4)
  - Death [Fatal]
  - Device programming error [Unknown]
  - Incorrect drug administration rate [Unknown]
  - Hypotension [Unknown]
